FAERS Safety Report 20130960 (Version 2)
Quarter: 2021Q4

REPORT INFORMATION
  Report Type: Spontaneous
  Country: US (occurrence: US)
  Receive Date: 20211130
  Receipt Date: 20211227
  Transmission Date: 20220303
  Serious: Yes (Hospitalization, Other)
  Sender: FDA-Public Use
  Company Number: US-MLMSERVICE-20211116-3222839-1

PATIENT
  Age: 68 Year
  Sex: Male

DRUGS (9)
  1. AZITHROMYCIN [Interacting]
     Active Substance: AZITHROMYCIN
     Indication: Pyrexia
     Dosage: 250 MG, DAILY
  2. AZITHROMYCIN [Interacting]
     Active Substance: AZITHROMYCIN
     Indication: Influenza like illness
  3. APIXABAN [Interacting]
     Active Substance: APIXABAN
     Indication: Atrial fibrillation
     Dosage: 5 MG, TWO TIMES A DAY (BID)
     Route: 048
  4. APIXABAN [Interacting]
     Active Substance: APIXABAN
     Indication: Coronary artery disease
     Dosage: 2.5 MG, 2X/DAY (LOWERED TO HALF)
     Route: 048
  5. APIXABAN [Interacting]
     Active Substance: APIXABAN
     Indication: Hypertension
     Dosage: 5 MG, TWO TIMES A DAY (BID)
     Route: 048
  6. APIXABAN [Interacting]
     Active Substance: APIXABAN
     Indication: Cerebrovascular accident prophylaxis
  7. ASPIRIN [Interacting]
     Active Substance: ASPIRIN
     Indication: Coronary artery disease
     Dosage: 81 MG
  8. ASPIRIN [Interacting]
     Active Substance: ASPIRIN
     Indication: Hypertension
  9. ASPIRIN [Interacting]
     Active Substance: ASPIRIN
     Indication: Atrial fibrillation

REACTIONS (5)
  - Drug interaction [Recovering/Resolving]
  - Abdominal wall haematoma [Recovering/Resolving]
  - Off label use [Unknown]
  - Intentional product use issue [Unknown]
  - Off label use [Unknown]
